FAERS Safety Report 10904341 (Version 2)
Quarter: 2015Q2

REPORT INFORMATION
  Report Type: Spontaneous
  Country: US (occurrence: US)
  Receive Date: 20150311
  Receipt Date: 20150505
  Transmission Date: 20150821
  Serious: Yes (Life-Threatening, Hospitalization)
  Sender: FDA-Public Use
  Company Number: US-BAYER-2015-034925

PATIENT
  Age: 22 Year
  Sex: Female
  Weight: 81.63 kg

DRUGS (1)
  1. MIRENA [Suspect]
     Active Substance: LEVONORGESTREL
     Indication: CONTRACEPTION
     Dosage: 20 MCG/24HR, CONT
     Route: 015
     Dates: start: 20110831, end: 20130403

REACTIONS (5)
  - General physical health deterioration [None]
  - Infection [None]
  - Injury [None]
  - Uterine perforation [None]
  - Abdominal pain [None]

NARRATIVE: CASE EVENT DATE: 20130403
